FAERS Safety Report 9779855 (Version 1)
Quarter: 2013Q4

REPORT INFORMATION
  Report Type: Spontaneous
  Country: FR (occurrence: FR)
  Receive Date: 20131223
  Receipt Date: 20131223
  Transmission Date: 20140711
  Serious: Yes (Hospitalization)
  Sender: FDA-Public Use
  Company Number: FR-ABBVIE-13P-056-1181626-00

PATIENT
  Age: 51 Year
  Sex: Male

DRUGS (12)
  1. NORVIR [Suspect]
     Indication: HIV INFECTION
     Route: 048
     Dates: end: 20131011
  2. NORVIR [Suspect]
  3. TRUVADA [Suspect]
     Indication: HIV INFECTION
     Route: 048
     Dates: start: 20130905, end: 20131011
  4. PREZISTA [Suspect]
     Indication: HIV INFECTION
     Route: 048
     Dates: start: 20130905, end: 20131011
  5. PREZISTA [Suspect]
  6. MALOCIDE [Concomitant]
     Indication: CEREBRAL TOXOPLASMOSIS
     Route: 048
     Dates: start: 20130915
  7. ADIAZINE [Concomitant]
     Indication: CEREBRAL TOXOPLASMOSIS
     Route: 048
     Dates: start: 20130915
  8. LEDERFOLINE [Concomitant]
     Indication: PRODUCT USED FOR UNKNOWN INDICATION
     Route: 048
  9. BACTRIM [Concomitant]
     Indication: PRODUCT USED FOR UNKNOWN INDICATION
     Dosage: 400MG/800MG
  10. KEPPRA [Concomitant]
     Indication: PRODUCT USED FOR UNKNOWN INDICATION
     Route: 048
  11. TIORFAN [Concomitant]
     Indication: PRODUCT USED FOR UNKNOWN INDICATION
     Route: 048
  12. SPASFON [Concomitant]
     Indication: PRODUCT USED FOR UNKNOWN INDICATION
     Route: 048

REACTIONS (1)
  - Hyperlactacidaemia [Recovered/Resolved]
